FAERS Safety Report 8953965 (Version 1)
Quarter: 2012Q4

REPORT INFORMATION
  Report Type: 
  Country: US (occurrence: US)
  Receive Date: 20121206
  Receipt Date: 20121206
  Transmission Date: 20130627
  Serious: No
  Sender: FDA-Public Use
  Company Number: US-009507513-1208USA006220

PATIENT
  Sex: Female
  Weight: 30.84 kg

DRUGS (3)
  1. LOTRIMIN ULTRA [Suspect]
     Indication: TINEA INFECTION
     Dosage: UNK, Unknown
     Route: 061
  2. LOTRIMIN ULTRA [Suspect]
     Indication: TINEA PEDIS
     Dosage: UNK, qd
     Route: 061
     Dates: start: 201208, end: 201209
  3. LOTRIMIN ULTRA [Suspect]
     Indication: PRURITUS

REACTIONS (3)
  - Accidental exposure to product by child [Unknown]
  - Drug administered to patient of inappropriate age [Unknown]
  - Off label use [Unknown]
